FAERS Safety Report 25427630 (Version 1)
Quarter: 2025Q2

REPORT INFORMATION
  Report Type: Spontaneous
  Country: GB (occurrence: GB)
  Receive Date: 20250612
  Receipt Date: 20250612
  Transmission Date: 20250716
  Serious: Yes (Other)
  Sender: ORGANON
  Company Number: None

PATIENT
  Age: 77 Year
  Sex: Female
  Weight: 67 kg

DRUGS (2)
  1. EZETIMIBE [Suspect]
     Active Substance: EZETIMIBE
     Indication: Adverse drug reaction
     Dates: start: 20250424, end: 20250502
  2. SPIRONOLACTONE [Concomitant]
     Active Substance: SPIRONOLACTONE
     Indication: Adverse drug reaction
     Dates: start: 20160515

REACTIONS (6)
  - Diarrhoea [Recovered/Resolved with Sequelae]
  - Flatulence [Not Recovered/Not Resolved]
  - Fatigue [Recovering/Resolving]
  - Emotional disorder [Recovered/Resolved]
  - Wrong technique in product usage process [Unknown]
  - Intentional product use issue [Unknown]

NARRATIVE: CASE EVENT DATE: 20250101
